FAERS Safety Report 18241520 (Version 1)
Quarter: 2020Q3

REPORT INFORMATION
  Report Type: Spontaneous
  Country: IN (occurrence: IN)
  Receive Date: 20200908
  Receipt Date: 20200908
  Transmission Date: 20201103
  Serious: No
  Sender: FDA-Public Use
  Company Number: IN-LUPIN LIMITED-2020-00968

PATIENT
  Age: 54 Year
  Sex: Female

DRUGS (6)
  1. CETIL FILM C. TABS 250 MG (CEFUROXIME AXETIL) [Suspect]
     Active Substance: CEFUROXIME AXETIL
     Indication: URINARY TRACT INFECTION
     Dosage: 1 DOSAGE FORM, BID
     Route: 048
     Dates: start: 20200220
  2. PROLOMET [Concomitant]
     Indication: BLOOD PRESSURE ABNORMAL
     Dosage: 1 DOSAGE FORM, PROLOMET XL 25, SINCE LAST 1.5 YEARS
     Route: 048
  3. AMBRICAN [Concomitant]
     Indication: PRODUCT USED FOR UNKNOWN INDICATION
     Dosage: 0.5 DOSAGE FORM, BID, AMBRICAN 6
     Route: 048
     Dates: start: 20200214
  4. MINOLAST FX [Concomitant]
     Indication: COUGH
     Dosage: 1 DOSAGE FORM
     Route: 048
     Dates: start: 20200214
  5. VELOZ D [Concomitant]
     Indication: GASTROOESOPHAGEAL REFLUX DISEASE
     Dosage: 1 DOSAGE FORM
     Route: 048
     Dates: start: 20200214
  6. MEDOX [AMBROXOL HYDROCHLORIDE] [Concomitant]
     Indication: PRODUCT USED FOR UNKNOWN INDICATION
     Dosage: 0.5 DOSAGE FORM, BID
     Route: 048
     Dates: start: 20200214

REACTIONS (2)
  - Diarrhoea [Not Recovered/Not Resolved]
  - Abdominal pain upper [Not Recovered/Not Resolved]

NARRATIVE: CASE EVENT DATE: 20200220
